FAERS Safety Report 13566676 (Version 2)
Quarter: 2017Q2

REPORT INFORMATION
  Report Type: Spontaneous
  Country: US (occurrence: US)
  Receive Date: 20170522
  Receipt Date: 20170605
  Transmission Date: 20170830
  Serious: No
  Sender: FDA-Public Use
  Company Number: US-BEH-2017080558

PATIENT
  Age: 14 Year
  Sex: Female

DRUGS (1)
  1. STIMATE [Suspect]
     Active Substance: DESMOPRESSIN ACETATE
     Indication: VON WILLEBRAND^S DISEASE
     Dosage: 2 SPRAYS, Q24HRS PRN BLEEDING
     Route: 045
     Dates: start: 20120622

REACTIONS (1)
  - Menorrhagia [Unknown]
